FAERS Safety Report 6665547-6 (Version None)
Quarter: 2010Q1

REPORT INFORMATION
  Report Type: 
  Country: None (occurrence: None)
  Receive Date: 20100330
  Receipt Date: 20100322
  Transmission Date: 20100710
  Serious: Yes (Death)
  Sender: FDA-Public Use
  Company Number: DSA_42645_2010

PATIENT
  Sex: Female

DRUGS (12)
  1. XENAZINE [Suspect]
     Indication: HUNTINGTON'S CHOREA
     Dosage: 12.5 MG QD ORAL, 12.5 MG BID ORAL, 12.5 MG TID ORAL
     Route: 048
     Dates: start: 20090101, end: 20090101
  2. XENAZINE [Suspect]
     Indication: HUNTINGTON'S CHOREA
     Dosage: 12.5 MG QD ORAL, 12.5 MG BID ORAL, 12.5 MG TID ORAL
     Route: 048
     Dates: start: 20090101, end: 20090101
  3. XENAZINE [Suspect]
     Indication: HUNTINGTON'S CHOREA
     Dosage: 12.5 MG QD ORAL, 12.5 MG BID ORAL, 12.5 MG TID ORAL
     Route: 048
     Dates: start: 20090101
  4. BACLOFEN [Concomitant]
  5. REMERON [Concomitant]
  6. KLONOPIN [Concomitant]
  7. AMBIEN [Concomitant]
  8. LEXAPRO [Concomitant]
  9. ATIVAN [Concomitant]
  10. SEROQUEL [Concomitant]
  11. VITAMIN E [Concomitant]
  12. OSCAL [Concomitant]

REACTIONS (1)
  - DEATH [None]
